FAERS Safety Report 11307893 (Version 2)
Quarter: 2015Q3

REPORT INFORMATION
  Report Type: Spontaneous
  Country: JP (occurrence: JP)
  Receive Date: 20150724
  Receipt Date: 20150727
  Transmission Date: 20151125
  Serious: Yes (Other)
  Sender: FDA-Public Use
  Company Number: JP-AMGEN-JPNSP2015073761

PATIENT
  Age: 65 Year
  Sex: Female

DRUGS (1)
  1. ENBREL [Suspect]
     Active Substance: ETANERCEPT
     Indication: RHEUMATOID ARTHRITIS
     Dosage: 25 MG, UNK
     Route: 058
     Dates: end: 201501

REACTIONS (11)
  - Asthenia [Unknown]
  - Asthma [Unknown]
  - Rheumatoid arthritis [Unknown]
  - Joint swelling [Unknown]
  - Swelling [Unknown]
  - Condition aggravated [Unknown]
  - Erythema [Unknown]
  - Neck pain [Unknown]
  - Pruritus [Unknown]
  - Rash generalised [Unknown]
  - Weight decreased [Unknown]

NARRATIVE: CASE EVENT DATE: 201411
